FAERS Safety Report 16100139 (Version 1)
Quarter: 2019Q1

REPORT INFORMATION
  Report Type: Spontaneous
  Country: RS (occurrence: RS)
  Receive Date: 20190321
  Receipt Date: 20190321
  Transmission Date: 20190418
  Serious: Yes (Hospitalization)
  Sender: FDA-Public Use
  Company Number: RS-JNJFOC-20190327425

PATIENT
  Age: 78 Year
  Sex: Male

DRUGS (6)
  1. XARELTO [Suspect]
     Active Substance: RIVAROXABAN
     Indication: ATRIAL FIBRILLATION
     Route: 048
     Dates: start: 20180417, end: 20190222
  2. OKSAZEPAM [Concomitant]
     Active Substance: OXAZEPAM
     Indication: HYPERTENSION
     Route: 048
  3. PREXANIL COMBI [Concomitant]
     Indication: HYPERTENSION
     Route: 048
  4. BYOL [Concomitant]
     Active Substance: BISOPROLOL
     Indication: HYPERTENSION
     Route: 048
  5. FUROSEMIDUM [Concomitant]
     Active Substance: FUROSEMIDE
     Indication: HYPERTENSION
     Route: 048
  6. PREXANIL [Concomitant]
     Active Substance: PERINDOPRIL
     Indication: HYPERTENSION
     Route: 048

REACTIONS (3)
  - Blood pressure increased [Recovered/Resolved]
  - Urinary retention [Recovered/Resolved]
  - Haemorrhagic disorder [Recovered/Resolved]

NARRATIVE: CASE EVENT DATE: 20190222
